FAERS Safety Report 10197301 (Version 1)
Quarter: 2014Q2

REPORT INFORMATION
  Report Type: Spontaneous
  Country: US (occurrence: US)
  Receive Date: 20140527
  Receipt Date: 20140527
  Transmission Date: 20141212
  Serious: Yes (Other)
  Sender: FDA-Public Use
  Company Number: US-GLAXOSMITHKLINE-B0997000A

PATIENT
  Age: 69 Year
  Sex: Female

DRUGS (5)
  1. ACYCLOVIR [Suspect]
     Indication: HERPES ZOSTER
     Dosage: 800MG FIVE TIMES PER DAY
     Route: 048
  2. ACYCLOVIR [Suspect]
     Indication: HERPES ZOSTER
     Dosage: 1.5G SINGLE DOSE
     Route: 042
  3. KETOROLAC [Suspect]
     Indication: HERPES ZOSTER
     Dosage: 30MG SINGLE DOSE
     Route: 065
  4. ONDANSETRON [Concomitant]
     Indication: HERPES ZOSTER
     Dosage: 4MG SINGLE DOSE
     Route: 065
  5. PREDNISONE [Concomitant]
     Indication: ASTHMA
     Route: 065

REACTIONS (6)
  - Neurotoxicity [Recovered/Resolved]
  - Renal failure acute [Recovered/Resolved]
  - Hallucination, visual [Unknown]
  - Confusional state [Unknown]
  - Aphasia [Unknown]
  - Leukocytosis [Unknown]
